FAERS Safety Report 23455322 (Version 1)
Quarter: 2024Q1

REPORT INFORMATION
  Report Type: Spontaneous
  Country: US (occurrence: US)
  Receive Date: 20240130
  Receipt Date: 20240130
  Transmission Date: 20240410
  Serious: No
  Sender: FDA-Public Use
  Company Number: US-JNJFOC-20240111642

PATIENT
  Sex: Male

DRUGS (3)
  1. MINOXIDIL [Suspect]
     Active Substance: MINOXIDIL
     Indication: Alopecia
     Route: 061
  2. BIOTIN [Concomitant]
     Active Substance: BIOTIN
     Indication: Alopecia
     Route: 048
  3. PROPECIA [Concomitant]
     Active Substance: FINASTERIDE
     Indication: Alopecia
     Route: 048

REACTIONS (1)
  - Alopecia [Not Recovered/Not Resolved]
